FAERS Safety Report 14549571 (Version 3)
Quarter: 2018Q1

REPORT INFORMATION
  Report Type: Spontaneous
  Country: US (occurrence: US)
  Receive Date: 20180219
  Receipt Date: 20180328
  Transmission Date: 20180509
  Serious: No
  Sender: FDA-Public Use
  Company Number: US-GLAXOSMITHKLINE-US2018026734

PATIENT
  Age: 86 Year
  Sex: Female
  Weight: 57.6 kg

DRUGS (1)
  1. ADVAIR DISKUS [Suspect]
     Active Substance: FLUTICASONE PROPIONATE\SALMETEROL XINAFOATE
     Indication: CHRONIC OBSTRUCTIVE PULMONARY DISEASE
     Dosage: 1 PUFF(S), BID
     Dates: start: 20170626, end: 20180219

REACTIONS (2)
  - Dysphonia [Unknown]
  - Alopecia [Unknown]

NARRATIVE: CASE EVENT DATE: 201711
